FAERS Safety Report 5375087-2 (Version None)
Quarter: 2007Q2

REPORT INFORMATION
  Report Type: 
  Country: None (occurrence: None)
  Receive Date: 20070629
  Receipt Date: 20060616
  Transmission Date: 20071010
  Serious: No
  Sender: FDA-Public Use
  Company Number: US-ASTRAZENECA-2006UW12878

PATIENT
  Sex: Male
  Weight: 70.3 kg

DRUGS (1)
  1. ZOLADEX [Suspect]
     Indication: PROSTATE CANCER
     Route: 058

REACTIONS (3)
  - BLOOD CHOLESTEROL INCREASED [None]
  - DRY MOUTH [None]
  - WEIGHT INCREASED [None]
